FAERS Safety Report 11072057 (Version 1)
Quarter: 2015Q2

REPORT INFORMATION
  Report Type: Spontaneous
  Country: JP (occurrence: JP)
  Receive Date: 20150428
  Receipt Date: 20150428
  Transmission Date: 20150821
  Serious: Yes (Other)
  Sender: FDA-Public Use
  Company Number: JP-SA-2015SA050539

PATIENT
  Age: 81 Year
  Sex: Male
  Weight: 56 kg

DRUGS (11)
  1. POLARAMINE [Concomitant]
     Active Substance: DEXCHLORPHENIRAMINE MALEATE
  2. DEXART [Concomitant]
     Active Substance: DEXAMETHASONE SODIUM PHOSPHATE
  3. LEVOFOLINATE [Suspect]
     Active Substance: LEVOLEUCOVORIN CALCIUM
     Indication: RECTAL CANCER
     Dosage: ROUTE: INFUSION
     Route: 041
     Dates: end: 20150330
  4. FOLINIC ACID [Concomitant]
     Active Substance: LEUCOVORIN
  5. AVASTIN [Concomitant]
     Active Substance: BEVACIZUMAB
  6. LOPEMIN [Concomitant]
     Active Substance: LOPERAMIDE HYDROCHLORIDE
  7. ELPLAT [Suspect]
     Active Substance: OXALIPLATIN
     Indication: RECTAL CANCER
     Dosage: ROUTE: INFUSION
     Route: 041
     Dates: end: 20150330
  8. FLIVAS [Concomitant]
     Active Substance: NAFTOPIDIL
  9. BESACOLIN [Concomitant]
     Active Substance: BETHANECHOL CHLORIDE
     Dosage: FORM: POWDER (EXCEPT [DPO])
  10. 5-FU [Concomitant]
     Active Substance: FLUOROURACIL
  11. GRANISETRON [Concomitant]
     Active Substance: GRANISETRON
     Dates: start: 20150330

REACTIONS (3)
  - Eczema [Recovered/Resolved]
  - Anaphylactic reaction [Recovered/Resolved]
  - Pruritus [Recovered/Resolved]

NARRATIVE: CASE EVENT DATE: 20150330
